FAERS Safety Report 11053231 (Version 2)
Quarter: 2015Q2

REPORT INFORMATION
  Report Type: Spontaneous
  Country: JP (occurrence: JP)
  Receive Date: 20150421
  Receipt Date: 20150428
  Transmission Date: 20150821
  Serious: Yes (Death, Hospitalization, Other)
  Sender: FDA-Public Use
  Company Number: JP-UCBSA-2015010446

PATIENT
  Age: 66 Year
  Sex: Male

DRUGS (13)
  1. NEUPRO [Suspect]
     Active Substance: ROTIGOTINE
     Indication: RESTLESS LEGS SYNDROME
     Dosage: 1 MG, ONCE DAILY (QD)
     Route: 062
     Dates: start: 20140407, end: 20140427
  2. SODIUM RABEPRAZOLE [Concomitant]
     Active Substance: RABEPRAZOLE SODIUM
     Indication: PRODUCT USED FOR UNKNOWN INDICATION
     Dosage: UNK
     Dates: end: 20140813
  3. TRAMADOL HYDROCHLORIDE AND ACETAMINOPHEN [Concomitant]
     Active Substance: ACETAMINOPHEN\TRAMADOL HYDROCHLORIDE
     Indication: PRODUCT USED FOR UNKNOWN INDICATION
     Dosage: UNK
     Dates: end: 20140813
  4. NEUPRO [Suspect]
     Active Substance: ROTIGOTINE
     Dosage: 2 MG, ONCE DAILY (QD)
     Route: 062
     Dates: start: 20140428, end: 20140814
  5. HALCION [Suspect]
     Active Substance: TRIAZOLAM
     Dosage: DAILY DOSE: 0.125 MG
     Route: 048
     Dates: start: 20140807, end: 20140807
  6. LOXOPROFEN SODIUM [Concomitant]
     Active Substance: LOXOPROFEN SODIUM
     Indication: PRODUCT USED FOR UNKNOWN INDICATION
     Dosage: UNK
     Dates: end: 20140813
  7. DESYREL [Suspect]
     Active Substance: TRAZODONE HYDROCHLORIDE
     Indication: INSOMNIA
     Dosage: DAILY DOSE: 25 MG
     Route: 048
     Dates: start: 20140804, end: 20140813
  8. SOLIFENACIN SUCCINATE [Concomitant]
     Active Substance: SOLIFENACIN SUCCINATE
     Indication: PRODUCT USED FOR UNKNOWN INDICATION
     Dosage: UNK
     Dates: end: 20140813
  9. DECADRON [Suspect]
     Active Substance: DEXAMETHASONE
     Indication: MALAISE
     Dosage: DAILY DOSE: 3.3 MG
     Route: 042
     Dates: start: 20140729, end: 20140807
  10. PROPIVERINE HYDROCHLORIDE [Concomitant]
     Active Substance: PROPIVERINE HYDROCHLORIDE
     Indication: PRODUCT USED FOR UNKNOWN INDICATION
     Dosage: UNK
     Dates: end: 20140813
  11. HALCION [Suspect]
     Active Substance: TRIAZOLAM
     Indication: PRODUCT USED FOR UNKNOWN INDICATION
     Dosage: DAILY DOSE: 0.25 MG
     Route: 048
     Dates: end: 20140806
  12. HALCION [Suspect]
     Active Substance: TRIAZOLAM
     Dosage: DAILY DOSE: 0.25 MG
     Route: 048
     Dates: start: 20140808, end: 20140813
  13. DIAZEPAM. [Concomitant]
     Active Substance: DIAZEPAM
     Indication: PRODUCT USED FOR UNKNOWN INDICATION
     Dosage: UNK
     Dates: end: 20140813

REACTIONS (7)
  - Pancreatic carcinoma [Fatal]
  - Dyskinesia [Recovering/Resolving]
  - Liver abscess [Unknown]
  - Delirium [Not Recovered/Not Resolved]
  - Insomnia [Unknown]
  - Libido increased [Not Recovered/Not Resolved]
  - Malaise [Unknown]

NARRATIVE: CASE EVENT DATE: 2014
